FAERS Safety Report 6023107-4 (Version None)
Quarter: 2008Q4

REPORT INFORMATION
  Report Type: 
  Country: None (occurrence: None)
  Receive Date: 20081230
  Receipt Date: 20081217
  Transmission Date: 20090506
  Serious: Yes (Death, Life-Threatening, Hospitalization)
  Sender: FDA-Public Use
  Company Number: EC-AMGEN-US324735

PATIENT
  Age: 55 Year
  Sex: Male
  Weight: 56 kg

DRUGS (13)
  1. NEUPOGEN [Suspect]
     Indication: CHEMOTHERAPY
     Route: 058
     Dates: start: 20081016, end: 20081129
  2. ETOPOSIDE [Concomitant]
     Route: 042
     Dates: start: 20081004, end: 20081126
  3. VINBLASTINE SULFATE [Concomitant]
     Route: 042
     Dates: start: 20081014, end: 20081124
  4. KYTRIL [Concomitant]
     Route: 042
     Dates: start: 20081014, end: 20081124
  5. CYCLOPHOSPHAMIDE [Concomitant]
     Route: 042
     Dates: start: 20081014, end: 20081124
  6. CARMUSTINE [Concomitant]
     Route: 042
     Dates: start: 20081014, end: 20081124
  7. METHOTREXATE [Concomitant]
     Route: 042
     Dates: start: 20081101, end: 20081101
  8. DEXAMETHASONE [Concomitant]
     Route: 042
     Dates: start: 20081101, end: 20081101
  9. LEUCOVORIN CALCIUM [Concomitant]
     Route: 042
     Dates: start: 20081101, end: 20081101
  10. RITUXIMAB [Concomitant]
     Route: 042
     Dates: start: 20081101, end: 20081101
  11. PREDNISONE [Concomitant]
  12. ADRIAMYCIN PFS [Concomitant]
  13. VINCRISTINE [Concomitant]

REACTIONS (5)
  - CARDIAC ARREST [None]
  - DEHYDRATION [None]
  - DRUG INEFFECTIVE [None]
  - FEBRILE NEUTROPENIA [None]
  - VOMITING [None]
